FAERS Safety Report 23155956 (Version 2)
Quarter: 2023Q4

REPORT INFORMATION
  Report Type: Spontaneous
  Country: US (occurrence: US)
  Receive Date: 20231107
  Receipt Date: 20231212
  Transmission Date: 20240110
  Serious: No
  Sender: FDA-Public Use
  Company Number: US-SANOFI-01824622

PATIENT
  Age: 68 Year
  Sex: Male

DRUGS (1)
  1. LANTUS SOLOSTAR [Suspect]
     Active Substance: INSULIN GLARGINE
     Indication: Type 2 diabetes mellitus
     Dosage: 5 U IN THE MORNING AND 10 UNITS IN THE EVENING
     Route: 058

REACTIONS (2)
  - Glycosylated haemoglobin increased [Recovering/Resolving]
  - Inappropriate schedule of product administration [Unknown]
